FAERS Safety Report 6344146-X (Version None)
Quarter: 2009Q3

REPORT INFORMATION
  Report Type: 
  Country: None (occurrence: None)
  Receive Date: 20090903
  Receipt Date: 20090903
  Transmission Date: 20100115
  Serious: No
  Sender: FDA-Public Use
  Company Number: None

PATIENT
  Sex: Male
  Weight: 88 kg

DRUGS (1)
  1. INTRON A [Suspect]
     Dosage: 820 MG

REACTIONS (8)
  - BLOOD PRESSURE DECREASED [None]
  - CHILLS [None]
  - DRY MOUTH [None]
  - EATING DISORDER [None]
  - FATIGUE [None]
  - FLUID INTAKE REDUCED [None]
  - NAUSEA [None]
  - VOMITING [None]
